FAERS Safety Report 4798421-0 (Version None)
Quarter: 2005Q4

REPORT INFORMATION
  Report Type: 
  Country: None (occurrence: None)
  Receive Date: 20051014
  Receipt Date: 20050314
  Transmission Date: 20060501
  Serious: Yes (Life-Threatening, Hospitalization, Other)
  Sender: FDA-Public Use
  Company Number: FR-NOVOPROD-242933

PATIENT
  Age: 52 Year
  Sex: Male

DRUGS (12)
  1. NOVOSEVEN [Suspect]
     Indication: FACTOR IX DEFICIENCY
     Dosage: 120 UG/KG,EVERY 2ND H FOR 2 DAYS
  2. NOVOSEVEN [Suspect]
     Dosage: 120 UG/KG,EVERY 4TH H FOR 2 DAYS
  3. NOVOSEVEN [Suspect]
     Dosage: 120 UG/KG,EVERY 6TH H FOR 4 DAYS
  4. CORVASAL [Concomitant]
     Dosage: 2 MG, TID
  5. DILTIAZEM HYDROCHLORIDE [Concomitant]
     Dosage: 200 MG, QD
  6. AVLOCARDYL [Concomitant]
     Dosage: 40 MG, BID
  7. URBANYL [Concomitant]
     Dosage: 5 MG, BID
  8. NITRODERM [Concomitant]
     Dosage: 10 MG, UNK
  9. DUPHALAC                                /NET/ [Concomitant]
     Dates: start: 20010625
  10. MOPRAL [Concomitant]
     Dosage: 20 MG, QD
     Dates: start: 20010625
  11. DAFALGAN [Concomitant]
     Dosage: 1-6
     Dates: start: 20010625
  12. AUGMENTIN [Concomitant]
     Dosage: 1 G, QD
     Dates: start: 20010625, end: 20010721

REACTIONS (4)
  - ANAEMIA [None]
  - ATRIOVENTRICULAR BLOCK [None]
  - HAEMORRHOID OPERATION [None]
  - HYPOVOLAEMIC SHOCK [None]
